FAERS Safety Report 9758904 (Version 1)
Quarter: 2013Q4

REPORT INFORMATION
  Report Type: Spontaneous
  Country: US (occurrence: None)
  Receive Date: 20131216
  Receipt Date: 20131216
  Transmission Date: 20140711
  Serious: No
  Sender: FDA-Public Use
  Company Number: 163-POMAL-13040270 (0)

PATIENT
  Age: 73 Year
  Sex: Female

DRUGS (8)
  1. POMALYST (POMALIDOMIDE) (4 MILLIGRAM, CAPSULES) [Suspect]
     Indication: PLASMA CELL MYELOMA
     Dosage: 4 MG, 21 IN 21 D, PO?3 MG, 1 IN 1 D, PO
  2. ACYCLOVIR (ACICLOVIR) (UNKNOWN) [Concomitant]
  3. AMLODIPINE BESYLATE (AMLODIPINE BESILATE) (UNKNOWN) [Concomitant]
  4. CALCIUM (CALCIUM) (UNKNOWN) [Concomitant]
  5. DEXAMETHASONE (DEXAMETHASONE) (UNKNOWN) [Concomitant]
  6. METOCLOPRAMIDE HCL (METOCLOPRAMIDE HYDROCHLORIDE) (UNKNOWN) [Concomitant]
  7. METRONIDAZOLE (METRONIDAZOLE) (UNKNOWN) [Concomitant]
  8. OMEPRAZOLE (OMEPRAZOLE) (UNKNOWN) [Concomitant]

REACTIONS (1)
  - White blood cell count decreased [None]
